FAERS Safety Report 7245399-6 (Version None)
Quarter: 2011Q1

REPORT INFORMATION
  Report Type: 
  Country: None (occurrence: None)
  Receive Date: 20110126
  Receipt Date: 20110124
  Transmission Date: 20110831
  Serious: Yes (Hospitalization)
  Sender: FDA-Public Use
  Company Number: JP-PFIZER INC-2011010365

PATIENT
  Age: 61 Year
  Sex: Male

DRUGS (9)
  1. PLETAL [Concomitant]
     Dosage: 100 MG, DAILY
  2. DIAZEPAM [Concomitant]
     Dosage: 4 DF, DAILY
  3. BUP-4 [Concomitant]
     Dosage: 20 MG, UNK
  4. OLMETEC [Concomitant]
     Dosage: 20 MG, DAILY
  5. NORVASC [Suspect]
     Dosage: 5 MG, DAILY
     Route: 048
  6. LIPITOR [Concomitant]
     Dosage: 10 MG, DAILY
  7. TOFRANIL [Concomitant]
     Dosage: 25 MG, DAILY
  8. AMARYL [Concomitant]
     Dosage: 1 MG, DAILY
  9. MELBIN [Concomitant]
     Dosage: 500 MG, DAILY

REACTIONS (2)
  - HYPOTHERMIA [None]
  - BLOOD PRESSURE DECREASED [None]
